FAERS Safety Report 6135333-4 (Version None)
Quarter: 2009Q1

REPORT INFORMATION
  Report Type: 
  Country: None (occurrence: None)
  Receive Date: 20090327
  Receipt Date: 20090209
  Transmission Date: 20090719
  Serious: No
  Sender: FDA-Public Use
  Company Number: US-BRISTOL-MYERS SQUIBB COMPANY-14498299

PATIENT
  Sex: Female

DRUGS (1)
  1. SPRYCEL [Suspect]
     Indication: CHRONIC MYELOID LEUKAEMIA
     Dosage: THERAPY STARTED 21/2 TO 3 WEEKS AGO FROM THE TIME OF THE REPORT.
     Dates: start: 20090101

REACTIONS (1)
  - TRANSAMINASES INCREASED [None]
